FAERS Safety Report 14929663 (Version 2)
Quarter: 2018Q2

REPORT INFORMATION
  Report Type: Spontaneous
  Country: NL (occurrence: NL)
  Receive Date: 20180523
  Receipt Date: 20180628
  Transmission Date: 20180711
  Serious: Yes (Other)
  Sender: FDA-Public Use
  Company Number: NL-PFIZER INC-2018204029

PATIENT
  Age: 70 Year
  Sex: Female
  Weight: 85 kg

DRUGS (6)
  1. THYRAX /00068001/ [Concomitant]
     Active Substance: LEVOTHYROXINE
     Dosage: UNK
  2. SIMVASTATINE [Suspect]
     Active Substance: SIMVASTATIN
     Indication: HYPERCHOLESTEROLAEMIA
     Dosage: 10 MG, 1X/DAY
     Dates: start: 20180216, end: 20180304
  3. PARACETAMOL [Concomitant]
     Active Substance: ACETAMINOPHEN
     Dosage: 1 DF, 1X/DAY (CHANGING USE OVER 25 YEARS)
     Route: 048
  4. OMEPRAZOL [Concomitant]
     Active Substance: OMEPRAZOLE
     Dosage: 40 MG, 1X/DAY
  5. THYRAX /00068001/ [Concomitant]
     Active Substance: LEVOTHYROXINE
     Dosage: UNK
  6. ATORVASTATIN CALCIUM. [Suspect]
     Active Substance: ATORVASTATIN CALCIUM
     Indication: HYPERCHOLESTEROLAEMIA
     Dosage: 10 MG, 1X/DAY
     Dates: start: 20180305, end: 20180312

REACTIONS (1)
  - Arrhythmia [Recovering/Resolving]

NARRATIVE: CASE EVENT DATE: 20180306
